FAERS Safety Report 6634216-0 (Version None)
Quarter: 2010Q1

REPORT INFORMATION
  Report Type: 
  Country: None (occurrence: None)
  Receive Date: 20100315
  Receipt Date: 20100302
  Transmission Date: 20100710
  Serious: Yes (Hospitalization, Disabling)
  Sender: FDA-Public Use
  Company Number: PHHY2010DE12931

PATIENT
  Sex: Female

DRUGS (5)
  1. CGS 20267 T30748+ [Suspect]
     Indication: BREAST CANCER
     Dosage: 2.5 MG DAILY
     Route: 048
     Dates: start: 20090320
  2. JODETTEN [Concomitant]
     Dosage: UNK
     Dates: start: 20031201
  3. BISOHEXAL [Concomitant]
     Dosage: 5 MG, UNK
     Dates: start: 20050101
  4. RAMIPRIL [Concomitant]
     Dosage: 2.5 MG, UNK
  5. ACETYLSALICYLIC ACID SRT [Concomitant]
     Dosage: 100 UG, UNK
     Dates: start: 20050101, end: 20091014

REACTIONS (3)
  - CEREBRAL HAEMORRHAGE [None]
  - CEREBROVASCULAR ACCIDENT [None]
  - GENERAL PHYSICAL HEALTH DETERIORATION [None]
